FAERS Safety Report 5276559-1 (Version None)
Quarter: 2007Q1

REPORT INFORMATION
  Report Type: 
  Country: None (occurrence: None)
  Receive Date: 20070327
  Receipt Date: 20070315
  Transmission Date: 20070707
  Serious: Yes (Hospitalization)
  Sender: FDA-Public Use
  Company Number: HQWYE804115MAR07

PATIENT
  Age: 84 Year
  Sex: Female

DRUGS (3)
  1. AVLOCARDYL [Suspect]
     Indication: ESSENTIAL HYPERTENSION
     Route: 048
     Dates: end: 20061113
  2. SINEMET [Interacting]
     Indication: PARKINSON'S DISEASE
     Dosage: SINEMET 25/100: FIVE DF DAILY AND SINEMET 50/200: FIVE DF DAILY
     Route: 048
     Dates: end: 20061108
  3. SINEMET [Interacting]
     Dosage: SINEMET 50/200: FIVE DF DAILY
     Route: 048
     Dates: start: 20061109

REACTIONS (3)
  - DRUG INTERACTION [None]
  - FALL [None]
  - ORTHOSTATIC HYPOTENSION [None]
